FAERS Safety Report 22603932 (Version 2)
Quarter: 2023Q2

REPORT INFORMATION
  Report Type: Report from Study
  Country: PE (occurrence: PE)
  Receive Date: 20230615
  Receipt Date: 20230619
  Transmission Date: 20230721
  Serious: Yes (Other)
  Sender: FDA-Public Use
  Company Number: PE-002147023-NVSC2023PE091375

PATIENT
  Age: 45 Year
  Sex: Female

DRUGS (6)
  1. KISQALI [Suspect]
     Active Substance: RIBOCICLIB
     Indication: Breast cancer metastatic
     Dosage: 600 MG, QD
     Route: 048
     Dates: start: 20221101
  2. KISQALI [Suspect]
     Active Substance: RIBOCICLIB
     Dosage: 1 UNK, QD
     Route: 048
     Dates: start: 20221219
  3. KISQALI [Suspect]
     Active Substance: RIBOCICLIB
     Dosage: 2 UNK, QD
     Route: 048
  4. KISQALI [Suspect]
     Active Substance: RIBOCICLIB
     Dosage: 600 MG, QD
     Route: 048
     Dates: start: 202302
  5. KISQALI [Suspect]
     Active Substance: RIBOCICLIB
     Dosage: 600 UNK, QD (UNITS NOT PROVIDED)
     Route: 048
     Dates: start: 20221101, end: 20230530
  6. TAXOL [Concomitant]
     Active Substance: PACLITAXEL
     Indication: Product used for unknown indication
     Dosage: UNK
     Route: 065

REACTIONS (15)
  - Metastases to bone [Unknown]
  - Hepatitis [Unknown]
  - Malignant neoplasm progression [Unknown]
  - Breast cancer metastatic [Unknown]
  - Neoplasm [Unknown]
  - Hepatomegaly [Unknown]
  - Urticaria [Unknown]
  - Spinal pain [Unknown]
  - Tumour marker abnormal [Unknown]
  - Decreased immune responsiveness [Unknown]
  - Haemoglobin decreased [Unknown]
  - Visual impairment [Unknown]
  - Drug intolerance [Unknown]
  - Influenza [Recovering/Resolving]
  - Dry skin [Recovering/Resolving]

NARRATIVE: CASE EVENT DATE: 20230530
